FAERS Safety Report 12951538 (Version 2)
Quarter: 2017Q1

REPORT INFORMATION
  Report Type: Spontaneous
  Country: CZ (occurrence: CZ)
  Receive Date: 20161117
  Receipt Date: 20170131
  Transmission Date: 20170428
  Serious: Yes (Death)
  Sender: FDA-Public Use
  Company Number: CZ-TEVA-710417ROM

PATIENT
  Age: 72 Year
  Sex: Female

DRUGS (5)
  1. GABAPENTIN. [Suspect]
     Active Substance: GABAPENTIN
  2. METOPROLOL. [Suspect]
     Active Substance: METOPROLOL
  3. VENLAFAXINE [Suspect]
     Active Substance: VENLAFAXINE HYDROCHLORIDE
  4. FENTANYL 75MCG/HR [Suspect]
     Active Substance: FENTANYL
     Indication: PRODUCT USED FOR UNKNOWN INDICATION
     Route: 062
  5. MIRTAZAPINE. [Suspect]
     Active Substance: MIRTAZAPINE

REACTIONS (2)
  - Toxicity to various agents [Fatal]
  - Overdose [Unknown]
